FAERS Safety Report 5286186-8 (Version None)
Quarter: 2007Q2

REPORT INFORMATION
  Report Type: 
  Country: None (occurrence: None)
  Receive Date: 20070403
  Receipt Date: 20070403
  Transmission Date: 20071010
  Serious: Yes (Life-Threatening, Hospitalization)
  Sender: FDA-Public Use
  Company Number: None

PATIENT
  Sex: Male
  Weight: 69.2189 kg

DRUGS (2)
  1. FLEETS PHOSPHOSODA C.B. FLEET [Suspect]
     Indication: COLONOSCOPY
     Dosage: 45 ML Q 4H PO 45 ML QD PO
     Route: 048
     Dates: start: 20070311, end: 20070312
  2. FLEETS PHOSPHOSODA C.B. FLEET [Suspect]
     Indication: COLONOSCOPY
     Dosage: 45 ML Q 4H PO 45 ML QD PO
     Route: 048
     Dates: start: 20070313, end: 20070313

REACTIONS (6)
  - BLOOD PHOSPHORUS ABNORMAL [None]
  - DECREASED APPETITE [None]
  - MALAISE [None]
  - NEPHROPATHY [None]
  - RENAL FAILURE ACUTE [None]
  - THIRST DECREASED [None]
